FAERS Safety Report 6657123-6 (Version None)
Quarter: 2010Q1

REPORT INFORMATION
  Report Type: 
  Country: None (occurrence: None)
  Receive Date: 20100330
  Receipt Date: 20100318
  Transmission Date: 20100710
  Serious: Yes (Other)
  Sender: FDA-Public Use
  Company Number: US-JNJFOC-20100305715

PATIENT
  Age: 6 Year
  Sex: Male
  Weight: 19.96 kg

DRUGS (6)
  1. CONCERTA [Suspect]
     Indication: ATTENTION DEFICIT/HYPERACTIVITY DISORDER
  2. FLUORIDE VITAMIN [Concomitant]
     Indication: NUTRITIONAL SUPPORT
  3. PREDNISOLONE [Concomitant]
     Indication: COUGH
  4. CEFDINIR [Concomitant]
     Indication: EAR INFECTION
  5. PROAIR HFA [Concomitant]
     Indication: ASTHMA
  6. NEBULIZER ALBUTEROL [Concomitant]
     Indication: ASTHMA

REACTIONS (5)
  - ABDOMINAL PAIN [None]
  - DECREASED APPETITE [None]
  - EAR INFECTION [None]
  - INFREQUENT BOWEL MOVEMENTS [None]
  - WEIGHT DECREASED [None]
